FAERS Safety Report 8673354 (Version 6)
Quarter: 2012Q4

REPORT INFORMATION
  Report Type: 
  Country: JP (occurrence: JP)
  Receive Date: 20120719
  Receipt Date: 20121231
  Transmission Date: 20130627
  Serious: Yes (Hospitalization, Other)
  Sender: FDA-Public Use
  Company Number: PHHY2012JP060251

PATIENT
  Age: 68 Year
  Sex: Male
  Weight: 48 kg

DRUGS (8)
  1. GLIVEC [Suspect]
     Indication: GASTROINTESTINAL STROMAL TUMOUR
     Dosage: 400 mg daily
     Route: 048
     Dates: start: 20111024, end: 20111026
  2. GLIVEC [Suspect]
     Dosage: 300 mg, daily
     Route: 048
     Dates: start: 20111028
  3. TAKEPRON [Concomitant]
     Route: 065
  4. MONILAC [Concomitant]
     Dosage: 60 ml, UNK
     Route: 048
     Dates: start: 20110920, end: 20111031
  5. PURSENNID [Concomitant]
     Dosage: 24 mg, UNK
     Route: 048
     Dates: start: 20110921
  6. TANATRIL [Concomitant]
     Indication: HYPERTENSION
     Dosage: 5 mg, UNK
     Route: 048
     Dates: start: 20111024, end: 20111028
  7. LENDORMIN [Concomitant]
     Indication: INSOMNIA
     Dosage: 0.25 mg, UNK
     Route: 048
     Dates: start: 20111019, end: 20111210
  8. LANSOPRAZOLE [Concomitant]
     Dosage: 15 mg, UNK
     Route: 048
     Dates: start: 20110920

REACTIONS (5)
  - Tumour lysis syndrome [Recovered/Resolved]
  - Blood creatinine increased [Recovering/Resolving]
  - Blood uric acid increased [Recovering/Resolving]
  - Gastrointestinal stromal tumour [Unknown]
  - Neoplasm recurrence [Unknown]
